FAERS Safety Report 23658425 (Version 1)
Quarter: 2024Q1

REPORT INFORMATION
  Report Type: Spontaneous
  Country: US (occurrence: US)
  Receive Date: 20240321
  Receipt Date: 20240321
  Transmission Date: 20240409
  Serious: No
  Sender: FDA-Public Use
  Company Number: US-009507513-2403USA001918

PATIENT
  Sex: Female

DRUGS (3)
  1. WELIREG [Suspect]
     Active Substance: BELZUTIFAN
     Indication: Paraganglion neoplasm
     Dosage: UNK
     Route: 048
  2. WELIREG [Suspect]
     Active Substance: BELZUTIFAN
     Indication: Phaeochromocytoma
  3. WELIREG [Suspect]
     Active Substance: BELZUTIFAN
     Indication: Polycythaemia

REACTIONS (2)
  - Off label use [Unknown]
  - No adverse event [Unknown]
